FAERS Safety Report 9186976 (Version 1)
Quarter: 2013Q1

REPORT INFORMATION
  Report Type: Spontaneous
  Country: US (occurrence: US)
  Receive Date: 20130325
  Receipt Date: 20130325
  Transmission Date: 20140127
  Serious: No
  Sender: FDA-Public Use
  Company Number: US-PFIZER INC-2006050750

PATIENT
  Sex: Female
  Weight: 65.32 kg

DRUGS (3)
  1. LYRICA [Suspect]
     Indication: NEUROPATHY PERIPHERAL
     Dosage: EVERY DAY
     Route: 048
     Dates: start: 200512
  2. NEURONTIN [Suspect]
     Indication: NEUROPATHY PERIPHERAL
     Route: 048
     Dates: start: 2005, end: 200512
  3. LACTULOSE [Concomitant]
     Route: 065

REACTIONS (4)
  - Drug ineffective [Recovering/Resolving]
  - Vision blurred [Unknown]
  - Paraesthesia [Not Recovered/Not Resolved]
  - Insomnia [Not Recovered/Not Resolved]
